FAERS Safety Report 10507820 (Version 1)
Quarter: 2014Q4

REPORT INFORMATION
  Report Type: Spontaneous
  Country: FR (occurrence: FR)
  Receive Date: 20141009
  Receipt Date: 20141009
  Transmission Date: 20150528
  Serious: Yes (Other)
  Sender: FDA-Public Use
  Company Number: FR-ABBVIE-14P-056-1291088-00

PATIENT
  Age: 67 Year
  Sex: Female

DRUGS (2)
  1. NORVIR [Suspect]
     Active Substance: RITONAVIR
     Indication: HIV INFECTION
     Route: 048
     Dates: start: 20110620, end: 20140909
  2. PREZISTA [Suspect]
     Active Substance: DARUNAVIR ETHANOLATE
     Indication: HIV INFECTION
     Route: 048
     Dates: start: 20110620, end: 20140909

REACTIONS (4)
  - Myalgia [Recovered/Resolved]
  - Gait disturbance [Unknown]
  - Mitochondrial toxicity [Unknown]
  - Myositis [Unknown]

NARRATIVE: CASE EVENT DATE: 20140909
